FAERS Safety Report 23627564 (Version 1)
Quarter: 2024Q1

REPORT INFORMATION
  Report Type: Spontaneous
  Country: US (occurrence: US)
  Receive Date: 20240313
  Receipt Date: 20240313
  Transmission Date: 20240410
  Serious: No
  Sender: FDA-Public Use
  Company Number: US-SA-SAC20240226000110

PATIENT
  Age: 63 Year
  Sex: Male
  Weight: 72.562 kg

DRUGS (3)
  1. FEXOFENADINE HYDROCHLORIDE [Suspect]
     Active Substance: FEXOFENADINE HYDROCHLORIDE
     Indication: Product used for unknown indication
     Dosage: UNK
  2. DUPILUMAB [Suspect]
     Active Substance: DUPILUMAB
     Indication: Dermatitis atopic
     Dosage: 300 MG, QOW
     Route: 058
     Dates: start: 20221011
  3. HALOBETASOL [Concomitant]
     Active Substance: HALOBETASOL
     Indication: Product used for unknown indication

REACTIONS (7)
  - Fall [Unknown]
  - Head injury [Unknown]
  - Concussion [Unknown]
  - Confusional state [Recovering/Resolving]
  - Impaired healing [Unknown]
  - Dehydration [Unknown]
  - Weight decreased [Recovering/Resolving]
